FAERS Safety Report 4660351-2 (Version None)
Quarter: 2005Q2

REPORT INFORMATION
  Report Type: 
  Country: None (occurrence: None)
  Receive Date: 20050512
  Receipt Date: 20050510
  Transmission Date: 20051028
  Serious: Yes (Other)
  Sender: FDA-Public Use
  Company Number: PHBS2005HR06519

PATIENT
  Age: 45 Year
  Sex: Female

DRUGS (3)
  1. LEPONEX [Suspect]
     Indication: SCHIZOPHRENIA
     Dosage: UNK, UNK
     Route: 048
     Dates: start: 20030101
  2. NOZINAN [Concomitant]
     Dosage: 100 MG/D
     Route: 065
  3. RIVOTRIL [Concomitant]
     Dosage: 3 MG/D
     Route: 065

REACTIONS (2)
  - LEUKOCYTOSIS [None]
  - LYMPHOPENIA [None]
